FAERS Safety Report 5027921-3 (Version None)
Quarter: 2006Q2

REPORT INFORMATION
  Report Type: 
  Country: None (occurrence: None)
  Receive Date: 20060612
  Receipt Date: 20060531
  Transmission Date: 20061013
  Serious: Yes (Other)
  Sender: FDA-Public Use
  Company Number: S06-BEL-01260-01

PATIENT
  Sex: Female

DRUGS (2)
  1. SIPRALEXA                       (ESCITALOPRAM) [Suspect]
     Indication: DEPRESSION
     Dosage: 10 MG QD PO
     Route: 048
  2. SEDANXIO                (PASSIFLORA INCARNATA) [Concomitant]

REACTIONS (3)
  - NAUSEA [None]
  - SCRATCH [None]
  - SELF INJURIOUS BEHAVIOUR [None]
